FAERS Safety Report 9688651 (Version 2)
Quarter: 2013Q4

REPORT INFORMATION
  Report Type: Report from Study
  Country: US (occurrence: US)
  Receive Date: 20131114
  Receipt Date: 20131203
  Transmission Date: 20140711
  Serious: Yes (Hospitalization, Other)
  Sender: FDA-Public Use
  Company Number: US-JNJFOC-20131105449

PATIENT
  Age: 62 Year
  Sex: Male
  Weight: 79.38 kg

DRUGS (9)
  1. SIMPONI [Suspect]
     Indication: ANKYLOSING SPONDYLITIS
     Route: 058
     Dates: start: 20131114
  2. SIMPONI [Suspect]
     Indication: ANKYLOSING SPONDYLITIS
     Route: 058
     Dates: start: 2010, end: 2012
  3. SIMPONI [Suspect]
     Indication: PSORIATIC ARTHROPATHY
     Route: 058
     Dates: start: 20131114
  4. SIMPONI [Suspect]
     Indication: PSORIATIC ARTHROPATHY
     Route: 058
     Dates: start: 2010, end: 2012
  5. PREDNISONE [Suspect]
     Indication: ARTHRITIS
     Route: 048
  6. PREDNISONE [Suspect]
     Indication: ARTHRITIS
     Route: 048
  7. ATIVAN [Concomitant]
     Indication: SLEEP DISORDER
     Route: 065
  8. ATENOLOL [Concomitant]
     Indication: HYPERTENSION
     Route: 048
  9. ACIPHEX [Concomitant]
     Indication: GASTROOESOPHAGEAL REFLUX DISEASE
     Route: 048

REACTIONS (16)
  - Intestinal obstruction [Recovered/Resolved]
  - Thrombosis [Recovered/Resolved]
  - Nocturia [Not Recovered/Not Resolved]
  - Dehydration [Not Recovered/Not Resolved]
  - Gastrointestinal necrosis [Recovered/Resolved]
  - Injection site pain [Unknown]
  - Device malfunction [Recovered/Resolved]
  - Drug ineffective [Unknown]
  - Gastrointestinal disorder [Unknown]
  - Weight decreased [Not Recovered/Not Resolved]
  - Blood sodium decreased [Not Recovered/Not Resolved]
  - Condition aggravated [Unknown]
  - Underdose [Unknown]
  - Dry eye [Recovered/Resolved]
  - Accidental exposure to product [Unknown]
  - Wrong technique in drug usage process [Unknown]
